FAERS Safety Report 20086011 (Version 1)
Quarter: 2021Q4

REPORT INFORMATION
  Report Type: Spontaneous
  Country: US (occurrence: None)
  Receive Date: 20211117
  Receipt Date: 20211117
  Transmission Date: 20220303
  Serious: Yes (Hospitalization)
  Sender: FDA-Public Use
  Company Number: None

PATIENT
  Age: 44 Year
  Sex: Male

DRUGS (14)
  1. MYCOPHENOLIC ACID [Suspect]
     Active Substance: MYCOPHENOLIC ACID
     Indication: Organ transplant
     Dosage: FREQUENCY : TWICE A DAY;?
     Route: 048
     Dates: start: 202110
  2. TACROLIMUS [Suspect]
     Active Substance: TACROLIMUS
     Indication: Organ transplant
     Dosage: FREQUENCY : TWICE A DAY;?
     Route: 048
     Dates: start: 202110
  3. ALLOPURINOL [Concomitant]
     Active Substance: ALLOPURINOL
  4. ACETAMINOPHEN\CODEINE PHOSPHATE [Concomitant]
     Active Substance: ACETAMINOPHEN\CODEINE PHOSPHATE
  5. ATORVASTATIN [Concomitant]
     Active Substance: ATORVASTATIN
  6. CLOTRIMAZOLE TRO [Concomitant]
  7. FAMOTIDINE [Concomitant]
     Active Substance: FAMOTIDINE
  8. MITIGARE [Concomitant]
     Active Substance: COLCHICINE
  9. LANTUS SOLOS [Concomitant]
  10. NOVOLOG [Concomitant]
     Active Substance: INSULIN ASPART
  11. PREDNISONE [Concomitant]
     Active Substance: PREDNISONE
  12. SULFAMETHOXAZOLE\TRIMETHOPRIM [Concomitant]
     Active Substance: SULFAMETHOXAZOLE\TRIMETHOPRIM
  13. VALGANCICLOV [Concomitant]
  14. VASCEPA [Concomitant]
     Active Substance: ICOSAPENT ETHYL

REACTIONS (1)
  - Hospitalisation [None]

NARRATIVE: CASE EVENT DATE: 20211021
